FAERS Safety Report 15634301 (Version 1)
Quarter: 2018Q4

REPORT INFORMATION
  Report Type: Spontaneous
  Country: SE (occurrence: SE)
  Receive Date: 20181119
  Receipt Date: 20181119
  Transmission Date: 20190205
  Serious: Yes (Hospitalization)
  Sender: FDA-Public Use
  Company Number: SE-TEVA-2018-SE-975660

PATIENT
  Age: 64 Year
  Sex: Male

DRUGS (11)
  1. OMEPRAZOL [Concomitant]
     Active Substance: OMEPRAZOLE
  2. EKLIRA GENUAIR [Concomitant]
     Active Substance: ACLIDINIUM BROMIDE
  3. BRICANYL [Concomitant]
     Active Substance: TERBUTALINE SULFATE
  4. BISOPROLOL [Concomitant]
     Active Substance: BISOPROLOL
  5. ELIQUIS [Concomitant]
     Active Substance: APIXABAN
  6. NITROLINGUAL [Concomitant]
     Active Substance: NITROGLYCERIN
  7. FURIX [Concomitant]
     Active Substance: FUROSEMIDE
     Dates: start: 20180903
  8. CORDARONE [Concomitant]
     Active Substance: AMIODARONE HYDROCHLORIDE
  9. SPIRONOLACTONE. [Suspect]
     Active Substance: SPIRONOLACTONE
     Indication: CARDIAC FAILURE
     Dosage: 25 MILLIGRAM DAILY;
     Route: 065
     Dates: start: 2018
  10. ENALAPRIL [Suspect]
     Active Substance: ENALAPRIL
     Indication: HYPERTENSION
     Dosage: 10 MILLIGRAM DAILY; 0.5 TABLET 2 TIMES DAILY
     Dates: start: 2018
  11. TRAMADOL. [Concomitant]
     Active Substance: TRAMADOL

REACTIONS (1)
  - Acute kidney injury [Recovered/Resolved]

NARRATIVE: CASE EVENT DATE: 20181018
